FAERS Safety Report 5805375-4 (Version None)
Quarter: 2008Q3

REPORT INFORMATION
  Report Type: 
  Country: None (occurrence: None)
  Receive Date: 20080708
  Receipt Date: 20080708
  Transmission Date: 20090109
  Serious: Yes (Life-Threatening, Hospitalization)
  Sender: FDA-Public Use
  Company Number: None

PATIENT
  Age: 62 Year
  Sex: Female
  Weight: 65.7716 kg

DRUGS (2)
  1. MOVIPREP [Suspect]
     Indication: BOWEL PREPARATION
     Dosage: 3/8'S OF PRESUMED DOSE EVERY 15 MINUTES PO
     Route: 048
     Dates: start: 20080626
  2. MOVIPREP [Suspect]
     Indication: COLONOSCOPY
     Dosage: 3/8'S OF PRESUMED DOSE EVERY 15 MINUTES PO
     Route: 048
     Dates: start: 20080626

REACTIONS (5)
  - HEADACHE [None]
  - HYPERTENSIVE CRISIS [None]
  - NAUSEA [None]
  - PAIN IN EXTREMITY [None]
  - PHARMACEUTICAL PRODUCT COMPLAINT [None]
